FAERS Safety Report 5999854-7 (Version None)
Quarter: 2008Q4

REPORT INFORMATION
  Report Type: 
  Country: None (occurrence: None)
  Receive Date: 20081215
  Receipt Date: 20081211
  Transmission Date: 20090506
  Serious: Yes (Life-Threatening)
  Sender: FDA-Public Use
  Company Number: NL-JNJFOC-20081203385

PATIENT
  Sex: Male
  Weight: 105 kg

DRUGS (1)
  1. TRISPORAL [Suspect]
     Indication: FUNGAL INFECTION
     Route: 065

REACTIONS (4)
  - BLOOD PRESSURE INCREASED [None]
  - CARDIAC DISORDER [None]
  - CARDIAC FAILURE [None]
  - PULMONARY OEDEMA [None]
